FAERS Safety Report 7700263-0 (Version None)
Quarter: 2011Q3

REPORT INFORMATION
  Report Type: 
  Country: None (occurrence: None)
  Receive Date: 20110822
  Receipt Date: 20110812
  Transmission Date: 20111222
  Serious: Yes (Death)
  Sender: FDA-Public Use
  Company Number: FR-JNJFOC-20110510597

PATIENT
  Sex: Male
  Weight: 85 kg

DRUGS (11)
  1. CORDARONE [Suspect]
     Indication: ARRHYTHMIA
     Route: 048
     Dates: start: 19990101, end: 20110509
  2. ALFUZOSIN HCL [Concomitant]
     Indication: BENIGN PROSTATIC HYPERPLASIA
     Route: 048
     Dates: start: 20090101, end: 20110509
  3. LASIX [Concomitant]
     Indication: HYPERTENSION
     Route: 048
     Dates: start: 19990101, end: 20110509
  4. ABIRATERONE ACETATE [Suspect]
     Route: 048
  5. CORDARONE [Suspect]
     Indication: ATRIAL FIBRILLATION
     Route: 048
     Dates: start: 19990101, end: 20110509
  6. RAMIPRIL [Suspect]
     Indication: ARRHYTHMIA
     Route: 048
     Dates: start: 19990101, end: 20110509
  7. ABIRATERONE ACETATE [Suspect]
     Indication: PROSTATE CANCER
     Route: 048
     Dates: start: 20110412, end: 20110509
  8. RAMIPRIL [Suspect]
     Indication: HYPERTENSION
     Route: 048
     Dates: start: 19990101, end: 20110509
  9. FLUINDIONE [Suspect]
     Indication: ATRIAL FIBRILLATION
     Route: 048
     Dates: start: 19990101, end: 20110509
  10. RAMIPRIL [Suspect]
     Indication: ATRIAL FIBRILLATION
     Route: 048
     Dates: start: 19990101, end: 20110509
  11. FLUINDIONE [Suspect]
     Indication: ARRHYTHMIA
     Route: 048
     Dates: start: 19990101, end: 20110509

REACTIONS (3)
  - DEATH [None]
  - DRUG INEFFECTIVE [None]
  - PROSTATE CANCER [None]
